FAERS Safety Report 11927855 (Version 1)
Quarter: 2016Q1

REPORT INFORMATION
  Report Type: Spontaneous
  Country: CH (occurrence: CH)
  Receive Date: 20160119
  Receipt Date: 20160119
  Transmission Date: 20160526
  Serious: Yes (Disabling, Other)
  Sender: FDA-Public Use
  Company Number: CH-TEVA-625771ISR

PATIENT
  Age: 46 Year
  Sex: Female

DRUGS (1)
  1. MEPHAQUINE [Suspect]
     Active Substance: MEFLOQUINE HYDROCHLORIDE
     Indication: MALARIA PROPHYLAXIS
     Dosage: 250 MILLIGRAM DAILY; UNSPECIFIED STRENGTH, 7 CAPSULES TOTAL
     Route: 048
     Dates: start: 20150927, end: 20151004

REACTIONS (22)
  - Accidental overdose [Not Recovered/Not Resolved]
  - Visual acuity reduced [Not Recovered/Not Resolved]
  - Transcription medication error [Not Recovered/Not Resolved]
  - Headache [Not Recovered/Not Resolved]
  - Hemiparesis [Not Recovered/Not Resolved]
  - Aphasia [Unknown]
  - Fear of death [Unknown]
  - Dysarthria [Not Recovered/Not Resolved]
  - Nightmare [Unknown]
  - Gait disturbance [Not Recovered/Not Resolved]
  - Fatigue [Not Recovered/Not Resolved]
  - Ototoxicity [Unknown]
  - Hypoaesthesia [Unknown]
  - Amnesia [Not Recovered/Not Resolved]
  - Dizziness [Not Recovered/Not Resolved]
  - Paraesthesia [Not Recovered/Not Resolved]
  - Somnolence [Unknown]
  - Confusional state [Recovered/Resolved]
  - Anxiety disorder [Not Recovered/Not Resolved]
  - Hepatocellular injury [Not Recovered/Not Resolved]
  - Vestibular neuronitis [Unknown]
  - Influenza like illness [Unknown]

NARRATIVE: CASE EVENT DATE: 201509
